FAERS Safety Report 13210621 (Version 2)
Quarter: 2017Q1

REPORT INFORMATION
  Report Type: Spontaneous
  Country: FR (occurrence: FR)
  Receive Date: 20170210
  Receipt Date: 20170328
  Transmission Date: 20170428
  Serious: Yes (Life-Threatening, Hospitalization, Other)
  Sender: FDA-Public Use
  Company Number: FR-AUROBINDO-AUR-APL-2017-29469

PATIENT
  Age: 83 Year
  Sex: Female

DRUGS (1)
  1. FLECAINIDE [Suspect]
     Active Substance: FLECAINIDE
     Indication: ATRIAL FIBRILLATION
     Route: 065

REACTIONS (5)
  - Bundle branch block [Recovered/Resolved]
  - Tachycardia [Recovered/Resolved]
  - Syncope [Recovered/Resolved]
  - Atrial flutter [Recovered/Resolved]
  - Electrocardiogram QRS complex prolonged [Recovered/Resolved]
